FAERS Safety Report 8082317-5 (Version None)
Quarter: 2012Q1

REPORT INFORMATION
  Report Type: 
  Country: None (occurrence: None)
  Receive Date: 20120127
  Receipt Date: 20110215
  Transmission Date: 20120608
  Serious: No
  Sender: FDA-Public Use
  Company Number: US-ABBOTT-11P-163-0705667-00

PATIENT
  Sex: Female
  Weight: 72.186 kg

DRUGS (11)
  1. ONDANSETRON HCL [Concomitant]
     Indication: NAUSEA
  2. HYDROCODONE BITARTRATE AND ACETAMINOPHEN [Concomitant]
     Indication: CROHN'S DISEASE
     Dosage: 5/500MG AS REQUIRED
  3. PRILOSEC [Concomitant]
     Indication: GASTROOESOPHAGEAL REFLUX DISEASE
  4. AMITRIPTYLINE HCL [Concomitant]
     Indication: INSOMNIA
     Dosage: AT BEDTIME
  5. NEURONTIN [Concomitant]
     Indication: MULTIPLE SCLEROSIS
     Dosage: 600MG THREE TIMES DAILY, 900MG AT BEDTIME
  6. VITAMIN B-12 [Concomitant]
     Indication: PRODUCT USED FOR UNKNOWN INDICATION
  7. BAYER [Concomitant]
     Indication: THROMBOSIS
  8. HUMIRA [Suspect]
     Indication: CROHN'S DISEASE
     Route: 058
     Dates: start: 20091001, end: 20100601
  9. HUMIRA [Suspect]
     Route: 058
     Dates: start: 20101001, end: 20101201
  10. CYCLOBENZAPRINE [Concomitant]
     Indication: MUSCLE SPASMS
  11. BENTYL [Concomitant]
     Indication: ABDOMINAL PAIN
     Dosage: AS REQUIRED

REACTIONS (5)
  - CROHN'S DISEASE [None]
  - FREQUENT BOWEL MOVEMENTS [None]
  - WEIGHT DECREASED [None]
  - ABDOMINAL PAIN [None]
  - NAUSEA [None]
